FAERS Safety Report 9279793 (Version 1)
Quarter: 2013Q2

REPORT INFORMATION
  Report Type: Spontaneous
  Country: US (occurrence: US)
  Receive Date: 20130509
  Receipt Date: 20130509
  Transmission Date: 20140414
  Serious: No
  Sender: FDA-Public Use
  Company Number: US-BIOGENIDEC-2013BI039685

PATIENT
  Age: 55 Year
  Sex: Female

DRUGS (4)
  1. AVONEX [Suspect]
     Indication: MULTIPLE SCLEROSIS
     Route: 030
     Dates: start: 20001107
  2. AVONEX [Suspect]
     Indication: MULTIPLE SCLEROSIS
     Route: 030
  3. SPIRONO HCTZ [Concomitant]
     Indication: MUSCULOSKELETAL PAIN
     Route: 048
     Dates: start: 20130430
  4. DETROL LA [Concomitant]
     Indication: URINARY INCONTINENCE
     Route: 048

REACTIONS (3)
  - Local swelling [Unknown]
  - Local swelling [Not Recovered/Not Resolved]
  - Musculoskeletal pain [Recovered/Resolved]
